FAERS Safety Report 9370075 (Version 1)
Quarter: 2013Q2

REPORT INFORMATION
  Report Type: Report from Study
  Country: CA (occurrence: CA)
  Receive Date: 20130626
  Receipt Date: 20130626
  Transmission Date: 20140414
  Serious: Yes (Other)
  Sender: FDA-Public Use
  Company Number: PHHY2013CA065468

PATIENT
  Age: 35 Year
  Sex: Female

DRUGS (5)
  1. GILENYA [Suspect]
     Indication: RELAPSING-REMITTING MULTIPLE SCLEROSIS
     Dosage: 0.5 MG, QD
     Route: 048
     Dates: start: 20130620
  2. MULTI-VIT [Concomitant]
  3. OMEGA 3-6-9 [Concomitant]
  4. TYLENOL [Concomitant]
  5. IBUPROFEN [Concomitant]

REACTIONS (3)
  - Sinus arrhythmia [Recovered/Resolved]
  - Palpitations [Recovered/Resolved]
  - Blood pressure decreased [Recovered/Resolved]
